FAERS Safety Report 4943901-8 (Version None)
Quarter: 2006Q1

REPORT INFORMATION
  Report Type: 
  Country: None (occurrence: None)
  Receive Date: 20060310
  Receipt Date: 20060227
  Transmission Date: 20060701
  Serious: Yes (Life-Threatening, Hospitalization, Other)
  Sender: FDA-Public Use
  Company Number: 2006028767

PATIENT
  Sex: Female
  Weight: 92.9874 kg

DRUGS (13)
  1. LIPITOR [Suspect]
     Indication: BLOOD CHOLESTEROL INCREASED
     Dosage: 20 MG (20 MG, 1 IN 1 D)
  2. TOPAMAX [Suspect]
     Indication: PETIT MAL EPILEPSY
  3. AMBIEN [Concomitant]
  4. SYNTHROID [Concomitant]
  5. FERROUS SULFATE TAB [Concomitant]
  6. CARDIZEM [Concomitant]
  7. ZANTAC [Concomitant]
  8. CHONDROITIN /GLUCOSAMINE (CHONDROITIN, GLUCOSAMINE) [Concomitant]
  9. VITAMIN C (VITAMIN C) [Concomitant]
  10. OSTEO BI-FLEX (CHONFROITIN SULFATE, GLUCOSAMINE HYDROCHLORIDE) [Concomitant]
  11. ACETAMINOPHEN [Concomitant]
  12. POTASSIUM (POTASSIUM) [Concomitant]
  13. GLUCOPHAGE [Concomitant]

REACTIONS (6)
  - DELIRIUM [None]
  - FEELING COLD [None]
  - HAEMATOCHEZIA [None]
  - HEPATIC STEATOSIS [None]
  - PNEUMONIA [None]
  - UPPER RESPIRATORY TRACT INFECTION [None]
